FAERS Safety Report 20907257 (Version 1)
Quarter: 2022Q2

REPORT INFORMATION
  Report Type: Spontaneous
  Country: PT (occurrence: PT)
  Receive Date: 20220602
  Receipt Date: 20220602
  Transmission Date: 20220721
  Serious: Yes (Other)
  Sender: FDA-Public Use
  Company Number: PT-VIIV HEALTHCARE LIMITED-PT2022EME080792

PATIENT
  Age: 56 Year
  Sex: Male

DRUGS (5)
  1. RITONAVIR [Suspect]
     Active Substance: RITONAVIR
     Indication: HIV infection
     Dosage: UNK
     Route: 048
     Dates: start: 1998
  2. TRIUMEQ [Suspect]
     Active Substance: ABACAVIR SULFATE\DOLUTEGRAVIR SODIUM\LAMIVUDINE
     Indication: HIV infection
     Route: 065
     Dates: start: 2016
  3. COMBIVIR [Suspect]
     Active Substance: LAMIVUDINE\ZIDOVUDINE
     Indication: HIV infection
     Route: 065
     Dates: start: 1998
  4. INDINAVIR [Suspect]
     Active Substance: INDINAVIR
     Indication: HIV infection
     Route: 065
     Dates: start: 1998
  5. EFAVIRENZ [Suspect]
     Active Substance: EFAVIRENZ
     Indication: HIV infection
     Route: 065
     Dates: start: 2002

REACTIONS (10)
  - Chronic kidney disease [Unknown]
  - Nephrolithiasis [Unknown]
  - Weight increased [Unknown]
  - Dyslipidaemia [Unknown]
  - Blood creatinine increased [Recovering/Resolving]
  - Glomerular filtration rate decreased [Recovering/Resolving]
  - Insomnia [Unknown]
  - Renal colic [Unknown]
  - Osteoporosis [Unknown]
  - Hypertension [Unknown]
